FAERS Safety Report 16873001 (Version 1)
Quarter: 2019Q4

REPORT INFORMATION
  Report Type: Spontaneous
  Country: US (occurrence: US)
  Receive Date: 20191001
  Receipt Date: 20191001
  Transmission Date: 20200122
  Serious: No
  Sender: FDA-Public Use
  Company Number: US-TEVA-2019-US-1115122

PATIENT
  Sex: Female

DRUGS (1)
  1. APRI 28 DAY [Suspect]
     Active Substance: DESOGESTREL\ETHINYL ESTRADIOL
     Dosage: DOSE STRENGTH: DESOGESTREL 0.15MG/ ETHINYLESTRADIOL 0.03MG.
     Route: 065

REACTIONS (1)
  - Menstruation delayed [Unknown]
